FAERS Safety Report 16150539 (Version 3)
Quarter: 2019Q2

REPORT INFORMATION
  Report Type: Spontaneous
  Country: US (occurrence: US)
  Receive Date: 20190402
  Receipt Date: 20190415
  Transmission Date: 20190711
  Serious: Yes (Hospitalization)
  Sender: FDA-Public Use
  Company Number: US-ACTELION-A-NJ2019-188217

PATIENT
  Age: 54 Year
  Sex: Female

DRUGS (11)
  1. ADEMPAS [Concomitant]
     Active Substance: RIOCIGUAT
     Dosage: 1.5 MG, TID
     Dates: start: 201902
  2. VITAMIN D3 [Concomitant]
     Active Substance: CHOLECALCIFEROL
     Dosage: 50000 MG, Q1WEEK
  3. OPSUMIT [Suspect]
     Active Substance: MACITENTAN
     Indication: PULMONARY ARTERIAL HYPERTENSION
     Dosage: 10 MG
     Route: 048
     Dates: start: 201902
  4. FOLIC ACID. [Concomitant]
     Active Substance: FOLIC ACID
  5. CIPROFLOXACIN. [Concomitant]
     Active Substance: CIPROFLOXACIN
  6. CYCLOBENZAPRINE HCL [Concomitant]
     Active Substance: CYCLOBENZAPRINE HYDROCHLORIDE
  7. BUMEX [Concomitant]
     Active Substance: BUMETANIDE
     Dosage: 1 MG, BID
  8. OXYGEN. [Concomitant]
     Active Substance: OXYGEN
  9. CARVEDILOL. [Concomitant]
     Active Substance: CARVEDILOL
  10. METHYLPREDNISOLONE. [Concomitant]
     Active Substance: METHYLPREDNISOLONE
  11. WARFARIN [Concomitant]
     Active Substance: WARFARIN
     Dosage: 6 MG, QD

REACTIONS (5)
  - Anaemia [Unknown]
  - Fluid retention [Unknown]
  - Hyperventilation [Unknown]
  - Heart rate increased [Unknown]
  - Transfusion [Unknown]

NARRATIVE: CASE EVENT DATE: 20190325
